FAERS Safety Report 12858564 (Version 5)
Quarter: 2017Q2

REPORT INFORMATION
  Report Type: Report from Study
  Country: RU (occurrence: RU)
  Receive Date: 20161018
  Receipt Date: 20170512
  Transmission Date: 20170830
  Serious: Yes (Death, Life-Threatening, Hospitalization)
  Sender: FDA-Public Use
  Company Number: RU-ROCHE-1835811

PATIENT
  Age: 49 Year
  Sex: Male
  Weight: 75 kg

DRUGS (6)
  1. ATEZOLIZUMAB [Suspect]
     Active Substance: ATEZOLIZUMAB
     Indication: RENAL CELL CARCINOMA
     Dosage: THE MOST RECENT DOSE PRIOR TO THE EVENT ONSET 08/SEP/2016 (1200 MG)
     Route: 042
     Dates: start: 20151014
  2. TRAMADOLUM [Concomitant]
     Indication: PAIN
     Route: 048
     Dates: start: 20160906
  3. BEVACIZUMAB [Suspect]
     Active Substance: BEVACIZUMAB
     Indication: RENAL CELL CARCINOMA
     Dosage: THE MOST RECENT DOSE PRIOR TO THE EVENT ONSET 08/SEP/2016 (1245 MG)
     Route: 042
     Dates: start: 20151014
  4. TRAMAL [Concomitant]
     Active Substance: TRAMADOL
     Indication: PAIN
     Dosage: PAIN SYNDROME IN BONES
     Route: 048
     Dates: start: 20150923
  5. TAVANIC [Concomitant]
     Active Substance: LEVOFLOXACIN
     Indication: PLEURAL EFFUSION
     Route: 048
     Dates: start: 20160410
  6. RAPAMYCIN [Concomitant]
     Active Substance: SIROLIMUS
     Indication: PLEURAL EFFUSION
     Route: 048
     Dates: start: 20160427

REACTIONS (3)
  - Multiple organ dysfunction syndrome [Fatal]
  - Large intestine perforation [Not Recovered/Not Resolved]
  - Peritonitis [Not Recovered/Not Resolved]

NARRATIVE: CASE EVENT DATE: 20160924
